FAERS Safety Report 16425824 (Version 2)
Quarter: 2025Q2

REPORT INFORMATION
  Report Type: Spontaneous
  Country: IE (occurrence: IE)
  Receive Date: 20190613
  Receipt Date: 20250617
  Transmission Date: 20250716
  Serious: Yes (Death)
  Sender: JOHNSON AND JOHNSON
  Company Number: None

PATIENT

DRUGS (2)
  1. INFLIXIMAB [Suspect]
     Active Substance: INFLIXIMAB
     Indication: Product used for unknown indication
     Route: 064
  2. BCG VACCINE [Suspect]
     Active Substance: BCG VACCINE
     Indication: Product used for unknown indication
     Route: 065

REACTIONS (2)
  - Disseminated tuberculosis [Fatal]
  - Maternal exposure during pregnancy [Fatal]
